FAERS Safety Report 6526932-6 (Version None)
Quarter: 2010Q1

REPORT INFORMATION
  Report Type: 
  Country: None (occurrence: None)
  Receive Date: 20100104
  Receipt Date: 20100104
  Transmission Date: 20100710
  Serious: Yes (Other)
  Sender: FDA-Public Use
  Company Number: None

PATIENT
  Age: 46 Year
  Sex: Female
  Weight: 65.7716 kg

DRUGS (3)
  1. VYVANSE [Suspect]
     Indication: ATTENTION DEFICIT/HYPERACTIVITY DISORDER
     Dosage: 50 MG 1 QD PO
     Route: 048
     Dates: start: 20090506, end: 20090611
  2. CITALOPRAM 20 MG MEIJER [Suspect]
     Indication: ANXIETY
     Dosage: 20 MG 1 QD PO
     Route: 048
     Dates: start: 20090405, end: 20090618
  3. CITALOPRAM 20 MG MEIJER [Suspect]
     Indication: DEPRESSION
     Dosage: 20 MG 1 QD PO
     Route: 048
     Dates: start: 20090405, end: 20090618

REACTIONS (5)
  - ATTENTION DEFICIT/HYPERACTIVITY DISORDER [None]
  - CONDITION AGGRAVATED [None]
  - IMPAIRED WORK ABILITY [None]
  - LIBIDO DECREASED [None]
  - LIBIDO INCREASED [None]
